FAERS Safety Report 10031602 (Version 2)
Quarter: 2014Q2

REPORT INFORMATION
  Report Type: Spontaneous
  Country: US (occurrence: US)
  Receive Date: 20140324
  Receipt Date: 20140422
  Transmission Date: 20141212
  Serious: No
  Sender: FDA-Public Use
  Company Number: US-PFIZER INC-2014079920

PATIENT
  Sex: Female

DRUGS (1)
  1. EFFEXOR XR [Suspect]
     Indication: ANTIDEPRESSANT THERAPY
     Dosage: UNK
     Dates: start: 2011

REACTIONS (15)
  - Electrocardiogram abnormal [Unknown]
  - Palpitations [Unknown]
  - Anxiety [Unknown]
  - Nervousness [Unknown]
  - Fear [Unknown]
  - Fear of death [Unknown]
  - Emotional disorder [Unknown]
  - Dizziness [Unknown]
  - Diarrhoea [Unknown]
  - Vomiting [Unknown]
  - Decreased appetite [Unknown]
  - Middle insomnia [Unknown]
  - Nausea [Unknown]
  - Malaise [Unknown]
  - Product quality issue [Unknown]
